FAERS Safety Report 16964745 (Version 1)
Quarter: 2019Q4

REPORT INFORMATION
  Report Type: Spontaneous
  Country: US (occurrence: US)
  Receive Date: 20191028
  Receipt Date: 20191028
  Transmission Date: 20200122
  Serious: Yes (Hospitalization, Other)
  Sender: FDA-Public Use
  Company Number: US-AUROBINDO-AUR-APL-2019-068855

PATIENT
  Age: 63 Year
  Sex: Female

DRUGS (5)
  1. DIHYDROERGOTAMINE MESILATE [Interacting]
     Active Substance: DIHYDROERGOTAMINE MESYLATE
     Indication: MIGRAINE
     Dosage: 0.25 MILLIGRAM
     Route: 042
  2. VALPROATE SODIUM. [Interacting]
     Active Substance: VALPROATE SODIUM
     Indication: MIGRAINE
     Dosage: 500 MILLIGRAM
     Route: 065
  3. PROMETHAZINE [Interacting]
     Active Substance: PROMETHAZINE HYDROCHLORIDE
     Indication: MIGRAINE
     Dosage: UNK
  4. KETAMINE [Interacting]
     Active Substance: KETAMINE
     Indication: MIGRAINE
     Dosage: 45 MILLIGRAM, EVERY HOUR, FOR 5 DAYS
  5. METHYLPREDNISOLONE. [Suspect]
     Active Substance: METHYLPREDNISOLONE
     Indication: MIGRAINE
     Dosage: UNK
     Route: 065

REACTIONS (6)
  - Visual acuity reduced [Recovered/Resolved]
  - Gait disturbance [Recovered/Resolved]
  - Reversible cerebral vasoconstriction syndrome [Recovered/Resolved]
  - Ataxia [Recovered/Resolved]
  - Posterior reversible encephalopathy syndrome [Recovered/Resolved]
  - Drug interaction [Unknown]
